FAERS Safety Report 8708936 (Version 2)
Quarter: 2013Q4

REPORT INFORMATION
  Report Type: Spontaneous
  Country: US (occurrence: US)
  Receive Date: 20120806
  Receipt Date: 20131031
  Transmission Date: 20140711
  Serious: No
  Sender: FDA-Public Use
  Company Number: US-009507513-2012SP020673

PATIENT
  Sex: Female

DRUGS (1)
  1. DR. SCHOLLS CORN REMOVERS [Suspect]
     Indication: HYPERKERATOSIS
     Dosage: UNK UNK, UNKNOWN
     Route: 061

REACTIONS (3)
  - Skin exfoliation [Unknown]
  - Application site pain [Not Recovered/Not Resolved]
  - Drug ineffective [Unknown]
